FAERS Safety Report 17901172 (Version 1)
Quarter: 2020Q2

REPORT INFORMATION
  Report Type: Spontaneous
  Country: DE (occurrence: DE)
  Receive Date: 20200616
  Receipt Date: 20200616
  Transmission Date: 20200714
  Serious: Yes (Hospitalization, Other)
  Sender: FDA-Public Use
  Company Number: DE-SA-2020SA036597

PATIENT

DRUGS (2)
  1. DUPIXENT [Suspect]
     Active Substance: DUPILUMAB
     Indication: NEURODERMATITIS
     Dosage: UNK, UNK UNK
     Route: 058
     Dates: start: 20190812, end: 20200121
  2. ASA [Concomitant]
     Active Substance: ASPIRIN
     Indication: TRANSIENT ISCHAEMIC ATTACK
     Dosage: 1 DF, QD
     Route: 048
     Dates: start: 202002

REACTIONS (7)
  - Hypercholesterolaemia [Unknown]
  - Cerebral arteriosclerosis [Unknown]
  - Hypertension [Unknown]
  - Urticaria [Unknown]
  - Dermatitis atopic [Recovered/Resolved]
  - Transient ischaemic attack [Unknown]
  - Visual impairment [Recovered/Resolved]

NARRATIVE: CASE EVENT DATE: 20200202
